FAERS Safety Report 26205330 (Version 1)
Quarter: 2025Q4

REPORT INFORMATION
  Report Type: Spontaneous
  Country: EU (occurrence: EU)
  Receive Date: 20251228
  Receipt Date: 20251228
  Transmission Date: 20260117
  Serious: Yes (Hospitalization)
  Sender: CSL BEHRING
  Company Number: EU-BEH-2025230123

PATIENT
  Sex: Male

DRUGS (4)
  1. PRIVIGEN [Suspect]
     Active Substance: HUMAN IMMUNOGLOBULIN G
     Indication: Chronic inflammatory demyelinating polyradiculoneuropathy
     Dosage: UNK
     Route: 065
     Dates: start: 2024
  2. PRIVIGEN [Suspect]
     Active Substance: HUMAN IMMUNOGLOBULIN G
     Dosage: 50 G (500 ML)
     Route: 042
     Dates: start: 20251212
  3. PRIVIGEN [Suspect]
     Active Substance: HUMAN IMMUNOGLOBULIN G
     Dosage: 50 G (500 ML)
     Route: 042
     Dates: start: 20251213
  4. PRIVIGEN [Suspect]
     Active Substance: HUMAN IMMUNOGLOBULIN G
     Dosage: 40 G (400 ML)
     Route: 042
     Dates: start: 20251214

REACTIONS (4)
  - Loss of consciousness [Unknown]
  - Malaise [Unknown]
  - Headache [Unknown]
  - Hypertension [Unknown]

NARRATIVE: CASE EVENT DATE: 20251201
